FAERS Safety Report 9854617 (Version 1)
Quarter: 2014Q1

REPORT INFORMATION
  Report Type: Spontaneous
  Country: US (occurrence: US)
  Receive Date: 20140130
  Receipt Date: 20140130
  Transmission Date: 20141002
  Serious: No
  Sender: FDA-Public Use
  Company Number: US-BIOGENIDEC-2014BI007956

PATIENT
  Sex: Female

DRUGS (14)
  1. TECFIDERA [Suspect]
     Indication: MULTIPLE SCLEROSIS
     Route: 048
     Dates: start: 20130701
  2. GABAPENTIN [Concomitant]
     Route: 048
  3. PHENYTONIN [Concomitant]
     Route: 048
  4. NUVIGIL [Concomitant]
     Route: 048
  5. MAGNESIUM [Concomitant]
     Route: 048
  6. VITAMIN D [Concomitant]
     Route: 048
  7. SYNTHROID [Concomitant]
     Route: 048
  8. FISH OIL [Concomitant]
     Route: 048
  9. MIRALAX [Concomitant]
     Route: 048
  10. MIRENA ESTROGEN IUD [Concomitant]
  11. CYMBALTA [Concomitant]
     Route: 048
  12. SINGULAIR [Concomitant]
     Route: 048
  13. ZYRTEC [Concomitant]
     Route: 048
  14. ATIVAN [Concomitant]
     Route: 048

REACTIONS (11)
  - Cystitis interstitial [Unknown]
  - Fibromyalgia [Unknown]
  - Irritable bowel syndrome [Unknown]
  - Hypothyroidism [Unknown]
  - Insomnia [Unknown]
  - Fatigue [Unknown]
  - Temporomandibular joint syndrome [Unknown]
  - Dysgeusia [Unknown]
  - Anxiety [Unknown]
  - Depression [Unknown]
  - Pain in extremity [Unknown]
